FAERS Safety Report 10755626 (Version 1)
Quarter: 2015Q1

REPORT INFORMATION
  Report Type: Spontaneous
  Country: KZ (occurrence: KZ)
  Receive Date: 20150202
  Receipt Date: 20150202
  Transmission Date: 20150721
  Serious: Yes (Death)
  Sender: FDA-Public Use
  Company Number: KZ-BAYER-2015-013579

PATIENT
  Age: 77 Year
  Sex: Male

DRUGS (1)
  1. ULTRAVIST [Suspect]
     Active Substance: IOPROMIDE
     Indication: COMPUTERISED TOMOGRAM THORAX
     Dosage: 100 ML, ONCE
     Route: 042
     Dates: start: 20141223, end: 20141223

REACTIONS (4)
  - Renal necrosis [Fatal]
  - Blood creatinine increased [Fatal]
  - General physical health deterioration [None]
  - Nephropathy toxic [Fatal]

NARRATIVE: CASE EVENT DATE: 20141226
